FAERS Safety Report 9965336 (Version 1)
Quarter: 2014Q1

REPORT INFORMATION
  Report Type: Report from Study
  Country: US (occurrence: US)
  Receive Date: 20140305
  Receipt Date: 20140305
  Transmission Date: 20141002
  Serious: No
  Sender: FDA-Public Use
  Company Number: US-ABBVIE-13P-163-1125222-00

PATIENT
  Age: 70 Year
  Sex: Female
  Weight: 120.31 kg

DRUGS (8)
  1. HUMIRA [Suspect]
     Indication: RHEUMATOID ARTHRITIS
     Route: 058
     Dates: start: 201206
  2. LEFLUNOMIDE [Concomitant]
     Indication: RHEUMATOID ARTHRITIS
     Dates: start: 201307
  3. MELOXICAM [Concomitant]
     Indication: RHEUMATOID ARTHRITIS
     Dates: end: 201307
  4. MELOXICAM [Concomitant]
     Dates: start: 201307, end: 201307
  5. MELOXICAM [Concomitant]
     Dates: start: 201307
  6. PREDNISONE [Concomitant]
     Indication: PRODUCT USED FOR UNKNOWN INDICATION
  7. PREDNISONE [Concomitant]
     Indication: PRODUCT USED FOR UNKNOWN INDICATION
  8. UNKNONW ANTI-HYPERTENSIVE [Concomitant]
     Indication: HYPERTENSION

REACTIONS (3)
  - Gait disturbance [Not Recovered/Not Resolved]
  - Pain in extremity [Not Recovered/Not Resolved]
  - Injection site pain [Unknown]
